FAERS Safety Report 8497243-7 (Version None)
Quarter: 2012Q3

REPORT INFORMATION
  Report Type: 
  Country: None (occurrence: None)
  Receive Date: 20120709
  Receipt Date: 20120606
  Transmission Date: 20120928
  Serious: No
  Sender: FDA-Public Use
  Company Number: US-AMGEN-USASP2012035503

PATIENT
  Age: 58 Year
  Sex: Female

DRUGS (1)
  1. ENBREL [Suspect]
     Indication: RHEUMATOID ARTHRITIS
     Dosage: 50 MG, QWK
     Dates: start: 20050101, end: 20120501

REACTIONS (7)
  - PARANASAL SINUS HYPERSECRETION [None]
  - HEARING IMPAIRED [None]
  - UPPER RESPIRATORY TRACT CONGESTION [None]
  - EAR DISCOMFORT [None]
  - DIARRHOEA [None]
  - RHEUMATOID ARTHRITIS [None]
  - PYREXIA [None]
